FAERS Safety Report 9828530 (Version 1)
Quarter: 2014Q1

REPORT INFORMATION
  Report Type: Spontaneous
  Country: MY (occurrence: MY)
  Receive Date: 20140117
  Receipt Date: 20140117
  Transmission Date: 20141002
  Serious: Yes (Life-Threatening, Disabling)
  Sender: FDA-Public Use
  Company Number: MY-ASTRAZENECA-2014SE03137

PATIENT
  Age: 22746 Day
  Sex: Male
  Weight: 86.5 kg

DRUGS (4)
  1. BRILINTA [Suspect]
     Indication: CORONARY ANGIOPLASTY
     Route: 048
  2. METFORMIN XR [Concomitant]
  3. TRAJENTA [Concomitant]
  4. ASPIRIN [Concomitant]

REACTIONS (3)
  - Hemiparesis [Unknown]
  - Hemiparesis [Unknown]
  - Haemorrhage intracranial [Not Recovered/Not Resolved]
